FAERS Safety Report 25182354 (Version 1)
Quarter: 2025Q2

REPORT INFORMATION
  Report Type: Spontaneous
  Country: US (occurrence: US)
  Receive Date: 20250410
  Receipt Date: 20250410
  Transmission Date: 20250717
  Serious: No
  Sender: KINIKSA PHARMACEUTICALS
  Company Number: US-Kiniksa Pharmaceuticals Ltd.-2024KPU001502

PATIENT
  Age: 73 Year
  Sex: Female

DRUGS (2)
  1. ARCALYST [Suspect]
     Active Substance: RILONACEPT
     Indication: Pericarditis
     Route: 058
     Dates: start: 20240823
  2. ARCALYST [Suspect]
     Active Substance: RILONACEPT
     Dosage: 2ML
     Route: 058

REACTIONS (4)
  - Dyspnoea [Not Recovered/Not Resolved]
  - Abdominal discomfort [Unknown]
  - Injection site pain [Unknown]
  - Injection site pain [Unknown]

NARRATIVE: CASE EVENT DATE: 20240823
